FAERS Safety Report 6557155-2 (Version None)
Quarter: 2010Q1

REPORT INFORMATION
  Report Type: 
  Country: None (occurrence: None)
  Receive Date: 20100126
  Receipt Date: 20100121
  Transmission Date: 20100710
  Serious: Yes (Life-Threatening, Hospitalization)
  Sender: FDA-Public Use
  Company Number: 2010GW000022

PATIENT
  Age: 42 Year
  Sex: Female

DRUGS (2)
  1. ALDARA [Suspect]
     Indication: PRECANCEROUS SKIN LESION
     Dosage: TOP
     Route: 061
     Dates: start: 20090316, end: 20090426
  2. PREDNISONE [Concomitant]

REACTIONS (8)
  - BLISTER [None]
  - CELLULITIS [None]
  - GAIT DISTURBANCE [None]
  - JOINT STIFFNESS [None]
  - JOINT SWELLING [None]
  - SKIN DISCOLOURATION [None]
  - STEVENS-JOHNSON SYNDROME [None]
  - URTICARIA [None]
